FAERS Safety Report 16546510 (Version 1)
Quarter: 2019Q3

REPORT INFORMATION
  Report Type: Spontaneous
  Country: NO (occurrence: NO)
  Receive Date: 20190709
  Receipt Date: 20190709
  Transmission Date: 20191004
  Serious: Yes (Other)
  Sender: FDA-Public Use
  Company Number: NO-JNJFOC-20190638431

PATIENT
  Sex: Male

DRUGS (3)
  1. TRAMADOL HYDROCHLORIDE. [Concomitant]
     Active Substance: TRAMADOL HYDROCHLORIDE
     Indication: ANALGESIC THERAPY
     Dosage: NOBLIGAN - SLOW RELEASE?QD (100-200 MG DEPENDING ON PAIN LEVEL ON THE GIVEN DAY)
     Route: 065
  2. FENTANYL. [Suspect]
     Active Substance: FENTANYL
     Indication: ANALGESIC THERAPY
     Route: 065
  3. PINEX FORTE [Concomitant]
     Active Substance: ACETAMINOPHEN\CODEINE PHOSPHATE
     Indication: ANALGESIC THERAPY
     Dosage: 500 MG, BID
     Route: 065

REACTIONS (4)
  - Respiratory moniliasis [Unknown]
  - Oral candidiasis [Unknown]
  - Speech disorder [Unknown]
  - Dyspnoea [Unknown]
